FAERS Safety Report 16508232 (Version 1)
Quarter: 2019Q3

REPORT INFORMATION
  Report Type: Spontaneous
  Country: US (occurrence: US)
  Receive Date: 20190702
  Receipt Date: 20190702
  Transmission Date: 20191004
  Serious: No
  Sender: FDA-Public Use
  Company Number: US-ROCHE-2178789

PATIENT
  Sex: Female

DRUGS (13)
  1. FENTANYL. [Concomitant]
     Active Substance: FENTANYL
     Dosage: DIS; 50MCG/HR
     Route: 065
  2. SIMVASTATIN. [Concomitant]
     Active Substance: SIMVASTATIN
     Route: 065
  3. ZOLPIDEM [Concomitant]
     Active Substance: ZOLPIDEM TARTRATE
     Route: 065
  4. ONDANSETRON [Concomitant]
     Active Substance: ONDANSETRON
     Route: 065
  5. XELODA [Suspect]
     Active Substance: CAPECITABINE
     Indication: AGRANULOCYTOSIS
     Dosage: 2 TABS IN MORNING+1 AT NIGHT FOR 14DAYS; 7DAYS OFF
     Route: 048
     Dates: start: 20180816
  6. DILAUDID [Concomitant]
     Active Substance: HYDROMORPHONE HYDROCHLORIDE
     Route: 065
  7. OXYCODONE [Concomitant]
     Active Substance: OXYCODONE
     Dosage: DOSE: 10-325 MG
     Route: 065
  8. PANTOPRAZOLE [Concomitant]
     Active Substance: PANTOPRAZOLE
     Route: 065
  9. CLOPIDOGREL [Concomitant]
     Active Substance: CLOPIDOGREL BISULFATE
     Route: 065
  10. LEVOTHYROXIN [Concomitant]
     Active Substance: LEVOTHYROXINE
     Route: 065
  11. APAP [Concomitant]
     Active Substance: ACETAMINOPHEN
     Dosage: DOSE: 10-325 MG
     Route: 065
  12. LISINOPRIL. [Concomitant]
     Active Substance: LISINOPRIL
     Route: 065
  13. MORPHINE SULFATE. [Concomitant]
     Active Substance: MORPHINE SULFATE

REACTIONS (6)
  - Intentional product use issue [Unknown]
  - Contusion [Not Recovered/Not Resolved]
  - Off label use [Unknown]
  - Peripheral swelling [Not Recovered/Not Resolved]
  - Pollakiuria [Not Recovered/Not Resolved]
  - Dysuria [Not Recovered/Not Resolved]
